FAERS Safety Report 5446554-8 (Version None)
Quarter: 2007Q3

REPORT INFORMATION
  Report Type: 
  Country: None (occurrence: None)
  Receive Date: 20070907
  Receipt Date: 20070829
  Transmission Date: 20080115
  Serious: Yes (Other)
  Sender: FDA-Public Use
  Company Number: US-PFIZER INC-2006063122

PATIENT
  Sex: Male
  Weight: 117.9 kg

DRUGS (6)
  1. CELEBREX [Suspect]
  2. LYRICA [Suspect]
     Indication: BACK PAIN
     Dates: start: 20060301, end: 20070701
  3. LYRICA [Suspect]
     Indication: NECK PAIN
  4. BEXTRA [Suspect]
  5. TOPROL-XL [Concomitant]
  6. DRUG, UNSPECIFIED [Concomitant]

REACTIONS (10)
  - ABDOMINAL DISCOMFORT [None]
  - APPENDICITIS [None]
  - CHEST PAIN [None]
  - CONSTIPATION [None]
  - DIARRHOEA [None]
  - DRUG INEFFECTIVE [None]
  - ENTERITIS [None]
  - HYPERTENSION [None]
  - HYPOTENSION [None]
  - POLYP [None]
